FAERS Safety Report 21763446 (Version 2)
Quarter: 2023Q1

REPORT INFORMATION
  Report Type: Spontaneous
  Country: US (occurrence: None)
  Receive Date: 20221221
  Receipt Date: 20230201
  Transmission Date: 20230417
  Serious: Yes (Hospitalization)
  Sender: FDA-Public Use
  Company Number: US-ROCHE-3245945

PATIENT
  Age: 11 Year
  Sex: Male

DRUGS (3)
  1. XOLAIR [Suspect]
     Active Substance: OMALIZUMAB
     Indication: Cystic fibrosis
     Dosage: STRENGTH: 150 MG/ML
     Route: 058
     Dates: start: 20220812
  2. XOLAIR [Suspect]
     Active Substance: OMALIZUMAB
     Indication: Lung disorder
  3. CAYSTON [Concomitant]
     Active Substance: AZTREONAM

REACTIONS (2)
  - Cystic fibrosis [Unknown]
  - Off label use [Unknown]
